FAERS Safety Report 9219619 (Version 2)
Quarter: 2014Q1

REPORT INFORMATION
  Report Type: Report from Study
  Country: SE (occurrence: SE)
  Receive Date: 20130409
  Receipt Date: 20140120
  Transmission Date: 20141002
  Serious: Yes (Hospitalization)
  Sender: FDA-Public Use
  Company Number: SE-ROCHE-1083948

PATIENT
  Age: 62 Year
  Sex: Female
  Weight: 59.4 kg

DRUGS (9)
  1. BEVACIZUMAB [Suspect]
     Indication: OVARIAN CANCER
     Dosage: 897 MG, LAST DOSE PRIOR TO SAE WAS 07/JUN/2012
     Route: 042
     Dates: start: 20110921, end: 20120703
  2. BEVACIZUMAB [Suspect]
     Route: 042
     Dates: start: 20120711
  3. PACLITAXEL [Suspect]
     Indication: OVARIAN CANCER
     Dosage: DOSE FORM: 175 MG X M2,  LAST DOSE PRIOR TO SAE WAS 14/DEC/2011
     Route: 042
     Dates: start: 20110921, end: 20120127
  4. CARBOPLATIN [Suspect]
     Indication: OVARIAN CANCER
     Dosage: AUC 5, LAST DOSE PRIOR TO SAE WAS 14/DEC/2011
     Route: 042
     Dates: start: 20110921, end: 20120127
  5. OMEPRAZOL [Concomitant]
     Route: 065
     Dates: start: 20110828
  6. ZOLPIDEM [Concomitant]
     Route: 065
     Dates: start: 20111227
  7. MIRTAZAPIN [Concomitant]
     Route: 065
     Dates: start: 20111227
  8. LOPERAMIDE [Concomitant]
     Route: 065
     Dates: start: 20120525
  9. ALPRAZOLAM [Concomitant]
     Route: 065
     Dates: start: 20111220

REACTIONS (1)
  - Infection [Recovered/Resolved with Sequelae]
